FAERS Safety Report 17835991 (Version 1)
Quarter: 2020Q2

REPORT INFORMATION
  Report Type: Report from Study
  Country: IT (occurrence: IT)
  Receive Date: 20200528
  Receipt Date: 20200528
  Transmission Date: 20200714
  Serious: Yes (Hospitalization)
  Sender: FDA-Public Use
  Company Number: IT-PFIZER INC-2020208928

PATIENT
  Age: 53 Year
  Sex: Male

DRUGS (1)
  1. METHYLPREDNISOLONE SODIUM SUCCINATE. [Suspect]
     Active Substance: METHYLPREDNISOLONE SODIUM SUCCINATE
     Indication: STEROID THERAPY
     Dosage: 1 MG, 1X/DAY
     Route: 042
     Dates: start: 20200316

REACTIONS (1)
  - Steroid diabetes [Recovering/Resolving]

NARRATIVE: CASE EVENT DATE: 20200317
